FAERS Safety Report 5534788-3 (Version None)
Quarter: 2007Q4

REPORT INFORMATION
  Report Type: 
  Country: None (occurrence: None)
  Receive Date: 20071120
  Receipt Date: 20070925
  Transmission Date: 20080405
  Serious: No
  Sender: FDA-Public Use
  Company Number: WAES 0702USA04670

PATIENT
  Age: 64 Year
  Sex: Female

DRUGS (16)
  1. JANUVIA [Suspect]
     Indication: DIABETES MELLITUS
     Dosage: 100 MG/DAILY/PO
     Route: 048
     Dates: start: 20070127
  2. ACECOL [Concomitant]
  3. EFFEXOR [Concomitant]
  4. HYZAAR [Concomitant]
  5. LEVOXYL [Concomitant]
  6. MIRAPEX [Concomitant]
  7. NEURONTIN [Concomitant]
  8. NEXIUM [Concomitant]
  9. NITRO-DUR [Concomitant]
  10. PADREATIN [Concomitant]
  11. PLAVIX [Concomitant]
  12. PRAVACHOL [Concomitant]
  13. RESTASIS [Concomitant]
  14. SALAGEN [Concomitant]
  15. ZELNORM [Concomitant]
  16. METFORMIN HCL [Concomitant]

REACTIONS (1)
  - DRUG INEFFECTIVE [None]
